FAERS Safety Report 16833167 (Version 1)
Quarter: 2019Q3

REPORT INFORMATION
  Report Type: Spontaneous
  Country: DK (occurrence: DK)
  Receive Date: 20190920
  Receipt Date: 20190920
  Transmission Date: 20191005
  Serious: Yes (Other)
  Sender: FDA-Public Use
  Company Number: DK-TEVA-2019-DK-1110241

PATIENT
  Age: 64 Year
  Sex: Female

DRUGS (2)
  1. SANDIMMUN NEORAL [Suspect]
     Active Substance: CYCLOSPORINE
     Indication: SKIN DISORDER
     Dosage: STRENGTH: UNKNOWN. DOSE: UNKNOWN.
     Route: 048
     Dates: start: 20010827
  2. NEOTIGASON [Suspect]
     Active Substance: ACITRETIN
     Indication: SKIN DISORDER
     Dosage: STRENGTH: UNKNOWN. DOSE: UNKNOWN.
     Route: 048
     Dates: start: 19980620

REACTIONS (7)
  - Alopecia [Unknown]
  - Taste disorder [Unknown]
  - Hairy cell leukaemia [Unknown]
  - Gingival bleeding [Unknown]
  - Mucosal haemorrhage [Unknown]
  - Epistaxis [Unknown]
  - Fatigue [Unknown]
